FAERS Safety Report 8483899-1 (Version None)
Quarter: 2012Q2

REPORT INFORMATION
  Report Type: 
  Country: None (occurrence: None)
  Receive Date: 20120402
  Receipt Date: 20110503
  Transmission Date: 20120825
  Serious: Yes (Hospitalization, Other)
  Sender: FDA-Public Use
  Company Number: A-NJ2011-48346

PATIENT
  Age: 69 Year
  Sex: Female

DRUGS (3)
  1. EPOPROSTENOL SODIUM [Suspect]
     Indication: PULMONARY ARTERIAL HYPERTENSION
     Dosage: 6.5 NG/KG, PER MIN, IV DRIP : 10 NG/KG, PER MIN, IV DRIP
     Route: 041
     Dates: start: 20110321, end: 20110501
  2. EPOPROSTENOL SODIUM [Suspect]
     Indication: PULMONARY ARTERIAL HYPERTENSION
     Dosage: 6.5 NG/KG, PER MIN, IV DRIP : 10 NG/KG, PER MIN, IV DRIP
     Route: 041
     Dates: start: 20110501
  3. COUMADIN [Concomitant]

REACTIONS (7)
  - PULMONARY EMBOLISM [None]
  - DEVICE RELATED INFECTION [None]
  - PAIN IN JAW [None]
  - MUSCULOSKELETAL PAIN [None]
  - INJECTION SITE ERYTHEMA [None]
  - WEIGHT BEARING DIFFICULTY [None]
  - JOINT RANGE OF MOTION DECREASED [None]
